FAERS Safety Report 18950099 (Version 2)
Quarter: 2021Q1

REPORT INFORMATION
  Report Type: Not Available
  Country: US (occurrence: US)
  Receive Date: 20210228
  Receipt Date: 20210310
  Transmission Date: 20210420
  Serious: No
  Sender: FDA-Public Use
  Company Number: US-NEUROCRINE BIOSCIENCES INC.-2021NBI00775

PATIENT
  Age: 71 Year
  Sex: Female

DRUGS (2)
  1. INGREZZA [Suspect]
     Active Substance: VALBENAZINE
     Indication: TARDIVE DYSKINESIA
     Route: 048
     Dates: start: 20210128, end: 20210203
  2. INGREZZA [Suspect]
     Active Substance: VALBENAZINE
     Route: 048
     Dates: start: 20210204, end: 20210222

REACTIONS (6)
  - Asthenia [Recovering/Resolving]
  - Constipation [Recovered/Resolved]
  - Lethargy [Recovering/Resolving]
  - Musculoskeletal stiffness [Recovering/Resolving]
  - Insomnia [Not Recovered/Not Resolved]
  - Arthralgia [Recovering/Resolving]

NARRATIVE: CASE EVENT DATE: 202102
